FAERS Safety Report 9458440 (Version 2)
Quarter: 2013Q3

REPORT INFORMATION
  Report Type: Spontaneous
  Country: JP (occurrence: JP)
  Receive Date: 20130814
  Receipt Date: 20130904
  Transmission Date: 20140515
  Serious: Yes (Life-Threatening)
  Sender: FDA-Public Use
  Company Number: PHHY2013JP086486

PATIENT
  Age: 80 Year
  Sex: Female

DRUGS (10)
  1. EQUA [Suspect]
     Indication: TYPE 2 DIABETES MELLITUS
     Dosage: 100 MG, DAILY
     Route: 048
     Dates: start: 20130719, end: 20130808
  2. FAMOTIDINE [Suspect]
     Dosage: 20 MG, DAILY
  3. PREDNISOLONE [Suspect]
     Dosage: 20 MG, DAILY
  4. MOBIC [Suspect]
     Dosage: 10 MG, DAILY
     Route: 048
  5. DIART [Suspect]
     Dosage: 30 MG, DAILY
     Route: 048
  6. ALDACTONE A [Suspect]
     Dosage: 25 MG, DAILY
     Route: 048
  7. MAGMITT [Suspect]
     Dosage: 1980 MG, DAILY
     Route: 048
  8. RISPERDAL [Suspect]
     Dosage: 10 ML, DAILY
     Route: 048
  9. RIMATIL [Suspect]
     Dosage: 100 MG, DAILY
     Route: 048
  10. NOVORAPID [Concomitant]
     Dosage: UNK UKN, UNK
     Route: 058

REACTIONS (1)
  - Interstitial lung disease [Not Recovered/Not Resolved]
